FAERS Safety Report 4371644-0 (Version None)
Quarter: 2004Q2

REPORT INFORMATION
  Report Type: 
  Country: None (occurrence: None)
  Receive Date: 20040604
  Receipt Date: 20040604
  Transmission Date: 20050107
  Serious: Yes (Hospitalization)
  Sender: FDA-Public Use
  Company Number: None

PATIENT
  Age: 48 Year
  Sex: Male
  Weight: 108.8633 kg

DRUGS (9)
  1. INTEGRILIN [Suspect]
     Indication: ANTIPLATELET THERAPY
     Dosage: 2 ( 9.5 ML BOLUSES) 17ML/HR IV
     Route: 042
     Dates: start: 20040524, end: 20040525
  2. HEPARIN [Suspect]
     Indication: ANTICOAGULANT THERAPY
     Dosage: 5450 UNITS IV
     Route: 042
     Dates: start: 20040524
  3. MIDAZOLAM HCL [Concomitant]
  4. FENTANYL [Concomitant]
  5. NITROGLYCERIN [Concomitant]
  6. CEFAZOLIN [Concomitant]
  7. ASPIRIN [Concomitant]
  8. CLOPIDOGREL BISULFATE [Concomitant]
  9. PEPCID [Concomitant]

REACTIONS (1)
  - POST PROCEDURAL HAEMORRHAGE [None]
